FAERS Safety Report 22204744 (Version 1)
Quarter: 2023Q2

REPORT INFORMATION
  Report Type: Spontaneous
  Country: EE (occurrence: EE)
  Receive Date: 20230413
  Receipt Date: 20230413
  Transmission Date: 20230722
  Serious: Yes (Other)
  Sender: FDA-Public Use
  Company Number: EE-BAYER-2022P000895

PATIENT
  Age: 54 Year
  Sex: Male
  Weight: 118 kg

DRUGS (1)
  1. XARELTO [Suspect]
     Active Substance: RIVAROXABAN
     Indication: Product used for unknown indication
     Dosage: 10 MG
     Route: 048
     Dates: start: 20220211

REACTIONS (4)
  - Pulmonary embolism [Unknown]
  - Cough [Unknown]
  - Dyspnoea [Unknown]
  - Embolism venous [Unknown]

NARRATIVE: CASE EVENT DATE: 20220401
